FAERS Safety Report 12173522 (Version 1)
Quarter: 2016Q1

REPORT INFORMATION
  Report Type: Spontaneous
  Country: US (occurrence: US)
  Receive Date: 20160311
  Receipt Date: 20160311
  Transmission Date: 20160526
  Serious: Yes (Other)
  Sender: FDA-Public Use
  Company Number: US-ALLERGAN-1638174US

PATIENT
  Age: 57 Year
  Sex: Female
  Weight: 113.38 kg

DRUGS (2)
  1. WELCHOL [Concomitant]
     Active Substance: COLESEVELAM HYDROCHLORIDE
     Indication: DUMPING SYNDROME
     Dosage: 6 PILLS PER DAY
     Route: 048
  2. VIBERZI [Suspect]
     Active Substance: ELUXADOLINE
     Indication: IRRITABLE BOWEL SYNDROME
     Dosage: 75 MG, UNK
     Route: 048
     Dates: start: 20160304, end: 20160304

REACTIONS (7)
  - Blood pressure increased [Recovered/Resolved]
  - Decreased appetite [Not Recovered/Not Resolved]
  - Nausea [Recovered/Resolved]
  - Abdominal pain upper [Recovering/Resolving]
  - Nasopharyngitis [Not Recovered/Not Resolved]
  - Diarrhoea [Recovered/Resolved]
  - Abdominal tenderness [Not Recovered/Not Resolved]

NARRATIVE: CASE EVENT DATE: 201603
